FAERS Safety Report 10588253 (Version 1)
Quarter: 2014Q4

REPORT INFORMATION
  Report Type: Report from Study
  Country: US (occurrence: US)
  Receive Date: 20141117
  Receipt Date: 20141117
  Transmission Date: 20150529
  Serious: Yes (Death, Hospitalization, Other)
  Sender: FDA-Public Use
  Company Number: US-BRISTOL-MYERS SQUIBB COMPANY-21576962

PATIENT
  Age: 71 Year
  Sex: Female
  Weight: 69 kg

DRUGS (9)
  1. METOPROLOL SUCCINATE. [Concomitant]
     Active Substance: METOPROLOL SUCCINATE
  2. POLYETHYLENE GLYCOL [Concomitant]
     Active Substance: POLYETHYLENE GLYCOLS
  3. CLONAZEPAM. [Concomitant]
     Active Substance: CLONAZEPAM
  4. MEGESTROL [Concomitant]
     Active Substance: MEGESTROL
  5. IBRUTINIB [Suspect]
     Active Substance: IBRUTINIB
     Indication: CHRONIC LYMPHOCYTIC LEUKAEMIA
     Dosage: CAPS;REDUCED:140MG
     Route: 048
     Dates: start: 20140630, end: 201408
  6. TEMAZEPAM. [Concomitant]
     Active Substance: TEMAZEPAM
  7. ONDANSETRON [Concomitant]
     Active Substance: ONDANSETRON
  8. COUMADIN [Suspect]
     Active Substance: WARFARIN SODIUM
     Dates: end: 201408
  9. RITUXAN [Concomitant]
     Active Substance: RITUXIMAB

REACTIONS (15)
  - Dehydration [Unknown]
  - Haematochezia [Unknown]
  - Transient ischaemic attack [Fatal]
  - Sepsis [Unknown]
  - Pneumonia [Unknown]
  - Rectal haemorrhage [Unknown]
  - Haematuria [Unknown]
  - Weight decreased [Unknown]
  - Dysphagia [Unknown]
  - Anaemia [Unknown]
  - Malnutrition [Unknown]
  - Pyrexia [Unknown]
  - Disease progression [Unknown]
  - Mouth haemorrhage [Unknown]
  - Urinary tract infection [Unknown]

NARRATIVE: CASE EVENT DATE: 2014
